FAERS Safety Report 4944093-1 (Version None)
Quarter: 2006Q1

REPORT INFORMATION
  Report Type: 
  Country: None (occurrence: None)
  Receive Date: 20060310
  Receipt Date: 20060302
  Transmission Date: 20060701
  Serious: Yes (Hospitalization)
  Sender: FDA-Public Use
  Company Number: US-2006-002225

PATIENT
  Age: 23 Month
  Sex: Female
  Weight: 7.7 kg

DRUGS (3)
  1. MAGNEVIST [Suspect]
     Indication: NUCLEAR MAGNETIC RESONANCE IMAGING BRAIN
     Dosage: 1.5 ML, 1 DOSE, INTRAVENOUS
     Route: 042
     Dates: start: 20060206, end: 20060206
  2. SYNTHROID [Concomitant]
  3. ANAESTHETICS [Concomitant]

REACTIONS (1)
  - RESPIRATORY DISTRESS [None]
